FAERS Safety Report 5644786-7 (Version None)
Quarter: 2008Q1

REPORT INFORMATION
  Report Type: 
  Country: None (occurrence: None)
  Receive Date: 20080229
  Receipt Date: 20070802
  Transmission Date: 20080703
  Serious: No
  Sender: FDA-Public Use
  Company Number: A0667909A

PATIENT
  Age: 71 Year
  Sex: Female

DRUGS (6)
  1. VALTREX [Suspect]
     Dosage: 1G THREE TIMES PER DAY
     Route: 048
     Dates: start: 20070731, end: 20070731
  2. ZESTRIL [Concomitant]
  3. TOPROL [Concomitant]
  4. CHLORTHALIDONE [Concomitant]
  5. POTASSIUM CHLORIDE [Concomitant]
  6. CALCIUM [Concomitant]

REACTIONS (4)
  - FEELING ABNORMAL [None]
  - PHARYNGOLARYNGEAL PAIN [None]
  - PRURITUS [None]
  - RASH [None]
